FAERS Safety Report 18886597 (Version 2)
Quarter: 2021Q1

REPORT INFORMATION
  Report Type: Spontaneous
  Country: BE (occurrence: BE)
  Receive Date: 20210212
  Receipt Date: 20210225
  Transmission Date: 20210420
  Serious: Yes (Other)
  Sender: FDA-Public Use
  Company Number: BE-PURDUE-USA-2021-0208524

PATIENT
  Age: 63 Year
  Sex: Female
  Weight: 170 kg

DRUGS (17)
  1. OXYCONTIN [Suspect]
     Active Substance: OXYCODONE HYDROCHLORIDE
     Dosage: 2 DF, DAILY [ABOUT 5 YEARS AGO] (STRENGTH 5MG)
     Route: 048
     Dates: start: 20170507, end: 20170510
  2. BELLOZAL [Suspect]
     Active Substance: BILASTINE
     Dosage: 1 DF, DAILY [ABOUT 5 ? 7 YEARS AGO] (STRENGTH 20 MG)
     Route: 048
     Dates: start: 2017
  3. CETIRIZINE [Suspect]
     Active Substance: CETIRIZINE HYDROCHLORIDE
     Indication: SEASONAL ALLERGY
     Dosage: 1 UNIT, DAILY (DOSAGE TEXT: ABOUT 5 YEAR)
     Route: 048
  4. PULMICORT TURBUHALER [Suspect]
     Active Substance: BUDESONIDE
     Indication: BRONCHITIS
     Dosage: 2 UNIT, DAILY (DOSAGE TEXT: ABOUT 3 YEARS AGO)
     Route: 048
  5. PULMICORT TURBUHALER [Suspect]
     Active Substance: BUDESONIDE
     Dosage: 2 UNIT, DAILY [ABOUT 3 YEARS AGO] (STRENGTH 200MICROGRAM/ DOSIS INHALATIEPOEDER)
     Route: 065
  6. OXYCONTIN [Suspect]
     Active Substance: OXYCODONE HYDROCHLORIDE
     Indication: PAIN
     Dosage: UNK (DOSAGE TEXT: ABOUT 5 YEARS AGO) (STRENGTH: 5MG)
     Route: 065
  7. PANTOMED                           /00178901/ [Concomitant]
     Active Substance: DEXPANTHENOL
     Indication: GASTRIC DISORDER
     Dosage: 1 DF, DAILY [TAKEN IN THE MORNING SOBERLY]
     Route: 065
  8. PARACETAMOL [Concomitant]
     Active Substance: ACETAMINOPHEN
     Indication: PAIN
     Dosage: 1 DF, PRN [UP TO 3 PER DAY]
     Route: 065
  9. ZOCOR [Suspect]
     Active Substance: SIMVASTATIN
     Indication: BLOOD CHOLESTEROL
     Dosage: 1 UNIT, DAILY (DOSAGE TEXT: ABOUT 5 YEAR)
     Route: 048
  10. CETIRIZINE [Suspect]
     Active Substance: CETIRIZINE HYDROCHLORIDE
     Dosage: 20 MG, DAILY [ABOUT 5 YEAR]
     Route: 048
     Dates: start: 201704
  11. BELLOZAL [Suspect]
     Active Substance: BILASTINE
     Indication: PRODUCT USED FOR UNKNOWN INDICATION
     Dosage: UNK (DOSAGE TEXT: ABOUT 5 ? 7 YEARS AGO)
     Route: 048
  12. LIPANTHYLNANO [Concomitant]
     Active Substance: FENOFIBRATE
     Indication: BLOOD CHOLESTEROL
     Dosage: UNK
     Route: 065
  13. ZOCOR [Suspect]
     Active Substance: SIMVASTATIN
     Indication: PRODUCT USED FOR UNKNOWN INDICATION
     Dosage: 1 DF, DAILY [ABOUT 5 YEAR,TAKEN IN THE EVENING] (STRENGTH 20 MG)
     Route: 048
  14. PULMICORT TURBUHALER [Suspect]
     Active Substance: BUDESONIDE
     Dosage: 1 DF, DAILY
     Route: 048
     Dates: start: 201604
  15. ZALDIAR [Concomitant]
     Active Substance: ACETAMINOPHEN\TRAMADOL HYDROCHLORIDE
     Indication: PAIN
     Dosage: 1 DF, PRN [UP TO 3 PER DAY]
     Route: 065
  16. LODIXAL [Concomitant]
     Active Substance: VERAPAMIL HYDROCHLORIDE
     Indication: CARDIOVASCULAR DISORDER
     Dosage: 0.5 DF, DAILY [TAKEN IN THE MORNING]
     Route: 065
  17. BROMAZEPAM EG [Concomitant]
     Indication: PRODUCT USED FOR UNKNOWN INDICATION
     Dosage: 1 DF, DAILY [TAKEN BEFORE GOING TO BED]
     Route: 065

REACTIONS (15)
  - Vomiting [Recovered/Resolved]
  - Arthralgia [Recovered/Resolved]
  - Rash erythematous [Recovered/Resolved]
  - Swelling [Recovered/Resolved]
  - Nausea [Recovered/Resolved]
  - Loss of consciousness [Recovered/Resolved]
  - Headache [Recovered/Resolved]
  - Myalgia [Recovered/Resolved]
  - Dizziness [Unknown]
  - Arrhythmia [Recovered/Resolved]
  - Blood pressure increased [Recovered/Resolved]
  - Blood pressure decreased [Recovered/Resolved]
  - Dyspnoea [Recovered/Resolved]
  - Gait disturbance [Unknown]
  - Hypertension [Unknown]
